FAERS Safety Report 7842284-3 (Version None)
Quarter: 2011Q4

REPORT INFORMATION
  Report Type: 
  Country: None (occurrence: None)
  Receive Date: 20111025
  Receipt Date: 20111017
  Transmission Date: 20120403
  Serious: Yes (Hospitalization)
  Sender: FDA-Public Use
  Company Number: BR-JNJFOC-20111007332

PATIENT
  Sex: Female

DRUGS (1)
  1. MYLICON [Suspect]
     Indication: FLATULENCE
     Route: 048
     Dates: start: 20111011, end: 20111013

REACTIONS (3)
  - OXYGEN SATURATION DECREASED [None]
  - SOMNOLENCE [None]
  - FEEDING DISORDER NEONATAL [None]
